FAERS Safety Report 23027363 (Version 2)
Quarter: 2025Q4

REPORT INFORMATION
  Report Type: Report from Study
  Country: CA (occurrence: CA)
  Receive Date: 20231004
  Receipt Date: 20251016
  Transmission Date: 20260118
  Serious: Yes (Death, Hospitalization, Other)
  Sender: SANDOZ
  Company Number: CA-002147023-NVSC2022CA232329

PATIENT
  Sex: Female

DRUGS (2)
  1. HYRIMOZ [Suspect]
     Active Substance: ADALIMUMAB-ADAZ
     Dosage: 40 MG
     Route: 058
     Dates: start: 20221012
  2. HYRIMOZ [Suspect]
     Active Substance: ADALIMUMAB-ADAZ
     Indication: Crohn^s disease
     Dosage: 40 MG, Q2W
     Route: 058
     Dates: start: 20220426

REACTIONS (6)
  - Death [Fatal]
  - Fall [Unknown]
  - Dementia Alzheimer^s type [Unknown]
  - Wound [Unknown]
  - Mobility decreased [Unknown]
  - Pneumonia [Unknown]
